FAERS Safety Report 5510289-3 (Version None)
Quarter: 2007Q4

REPORT INFORMATION
  Report Type: 
  Country: None (occurrence: None)
  Receive Date: 20071108
  Receipt Date: 20071101
  Transmission Date: 20080405
  Serious: Yes (Other)
  Sender: FDA-Public Use
  Company Number: US-JNJFOC-20071101693

PATIENT
  Age: 88 Year
  Sex: Female
  Weight: 58.06 kg

DRUGS (5)
  1. EXTRA STRENGTH TYLENOL [Suspect]
  2. EXTRA STRENGTH TYLENOL [Suspect]
     Indication: PAIN
  3. LASIX [Concomitant]
     Indication: DIURETIC THERAPY
  4. SPIRIVA [Concomitant]
     Indication: EMPHYSEMA
  5. DILTIAZEM [Concomitant]
     Indication: HYPERTENSION

REACTIONS (1)
  - DYSPNOEA [None]
